FAERS Safety Report 10759991 (Version 1)
Quarter: 2015Q1

REPORT INFORMATION
  Report Type: Spontaneous
  Country: US (occurrence: US)
  Receive Date: 20150203
  Receipt Date: 20150203
  Transmission Date: 20150721
  Serious: No
  Sender: FDA-Public Use
  Company Number: US-ASTRAZENECA-2015SE08022

PATIENT
  Age: 1877 Day
  Sex: Female
  Weight: 31.8 kg

DRUGS (1)
  1. QUETIAPINE FUMURATE [Suspect]
     Active Substance: QUETIAPINE FUMARATE
     Indication: AUTISM
     Route: 048
     Dates: start: 20150114

REACTIONS (7)
  - Lethargy [Unknown]
  - Activities of daily living impaired [Unknown]
  - Abnormal behaviour [Unknown]
  - Aggression [Unknown]
  - Off label use [Unknown]
  - Violence-related symptom [Unknown]
  - Agitation [Unknown]

NARRATIVE: CASE EVENT DATE: 20150114
